FAERS Safety Report 5299910-5 (Version None)
Quarter: 2007Q2

REPORT INFORMATION
  Report Type: 
  Country: None (occurrence: None)
  Receive Date: 20070417
  Receipt Date: 20070405
  Transmission Date: 20071010
  Serious: Yes (Hospitalization)
  Sender: FDA-Public Use
  Company Number: FR-PFIZER INC-2007027777

PATIENT
  Age: 62 Year
  Sex: Male

DRUGS (3)
  1. TAHOR [Suspect]
     Route: 048
  2. ALDALIX [Suspect]
     Dosage: TEXT:50MG/20MG;50MG/20MG
     Route: 048
  3. LANSOPRAZOLE [Suspect]
     Route: 048

REACTIONS (1)
  - DEHYDRATION [None]
